FAERS Safety Report 6766675-7 (Version None)
Quarter: 2010Q2

REPORT INFORMATION
  Report Type: 
  Country: None (occurrence: None)
  Receive Date: 20100611
  Receipt Date: 20100505
  Transmission Date: 20101027
  Serious: Yes (Other)
  Sender: FDA-Public Use
  Company Number: US-BAXTER-2010BH000868

PATIENT
  Age: 44 Year
  Sex: Male
  Weight: 90 kg

DRUGS (11)
  1. HEPARIN SODIUM [Suspect]
     Indication: CATHETERISATION CARDIAC
     Route: 042
     Dates: start: 20071015, end: 20071015
  2. HEPARIN SODIUM [Suspect]
     Indication: AORTIC VALVE REPAIR
     Route: 042
     Dates: start: 20071015, end: 20071015
  3. HEPARIN SODIUM [Suspect]
     Indication: AORTIC ANEURYSM REPAIR
     Route: 042
     Dates: start: 20071015, end: 20071015
  4. HEPARIN SODIUM [Suspect]
     Route: 042
     Dates: start: 20071017
  5. HEPARIN SODIUM [Suspect]
     Route: 042
     Dates: start: 20071017
  6. HEPARIN SODIUM [Suspect]
     Route: 042
     Dates: start: 20071017
  7. PEPCID [Concomitant]
     Indication: DRUG USE FOR UNKNOWN INDICATION
     Route: 065
  8. ASPIRIN [Concomitant]
     Indication: DRUG USE FOR UNKNOWN INDICATION
     Route: 065
  9. IBUPROFEN [Concomitant]
     Indication: DRUG USE FOR UNKNOWN INDICATION
     Route: 065
  10. AMIODARONE HYDROCHLORIDE [Concomitant]
     Indication: DRUG USE FOR UNKNOWN INDICATION
     Route: 065
  11. METOPROLOL TARTRATE [Concomitant]
     Indication: DRUG USE FOR UNKNOWN INDICATION
     Route: 065

REACTIONS (10)
  - ARRHYTHMIA [None]
  - ASTHENIA [None]
  - ATRIAL FIBRILLATION [None]
  - BLOOD PRESSURE DECREASED [None]
  - CHEST PAIN [None]
  - DRUG HYPERSENSITIVITY [None]
  - HEPARIN-INDUCED THROMBOCYTOPENIA [None]
  - HYPERTENSION [None]
  - PULMONARY EMBOLISM [None]
  - SYNCOPE [None]
